FAERS Safety Report 4978945-3 (Version None)
Quarter: 2006Q2

REPORT INFORMATION
  Report Type: 
  Country: None (occurrence: None)
  Receive Date: 20060419
  Receipt Date: 20060419
  Transmission Date: 20061013
  Serious: Yes (Other)
  Sender: FDA-Public Use
  Company Number: None

PATIENT
  Sex: Female
  Weight: 59.93 kg

DRUGS (1)
  1. HYDREA [Suspect]
     Indication: MUCOPOLYSACCHARIDOSIS
     Dosage: 500 MG 1 TID DAILEY

REACTIONS (2)
  - NAUSEA [None]
  - VOMITING [None]
